FAERS Safety Report 15302210 (Version 1)
Quarter: 2018Q4

REPORT INFORMATION
  Report Type: Spontaneous
  Country: US (occurrence: US)
  Receive Date: 20180821
  Receipt Date: 20180821
  Transmission Date: 20190204
  Serious: No
  Sender: FDA-Public Use
  Company Number: US-009507513-1808USA003760

PATIENT
  Sex: Male

DRUGS (5)
  1. LANOLIN (+) PETROLATUM [Suspect]
     Active Substance: LANOLIN\PETROLATUM
     Indication: RASH
  2. LANOLIN (+) PETROLATUM [Suspect]
     Active Substance: LANOLIN\PETROLATUM
     Indication: TINEA CRURIS
  3. LANOLIN (+) PETROLATUM [Suspect]
     Active Substance: LANOLIN\PETROLATUM
     Indication: DRY SKIN
     Dosage: USES A THICK LAYER EVERY OTHER DAY
     Route: 061
     Dates: start: 2016
  4. BETAMETHASONE DIPROPIONATE (+) SALICYLIC ACID [Suspect]
     Active Substance: BETAMETHASONE DIPROPIONATE\SALICYLIC ACID
     Indication: PRODUCT USED FOR UNKNOWN INDICATION
     Dosage: UNK
  5. LANOLIN (+) PETROLATUM [Suspect]
     Active Substance: LANOLIN\PETROLATUM
     Indication: HYPERHIDROSIS

REACTIONS (5)
  - Off label use [Unknown]
  - Wrong technique in product usage process [Unknown]
  - Product use in unapproved indication [Unknown]
  - Device adhesion issue [Unknown]
  - Drug ineffective [Unknown]
